FAERS Safety Report 9184392 (Version 1)
Quarter: 2012Q4

REPORT INFORMATION
  Report Type: 
  Country: GB (occurrence: GB)
  Receive Date: 20121031
  Receipt Date: 20121031
  Transmission Date: 20130627
  Serious: Yes (Hospitalization, Other)
  Sender: FDA-Public Use
  Company Number: GB-B.I. PHARMACEUTICALS,INC./RIDGEFIELD-2012-UK-01557UK

PATIENT
  Age: 89 Year
  Sex: Female

DRUGS (9)
  1. DABIGATRAN [Suspect]
     Indication: CEREBROVASCULAR ACCIDENT PROPHYLAXIS
     Dosage: 110mg 2/1 days
     Route: 048
     Dates: start: 20120907, end: 20120930
  2. BISOPROLOL [Concomitant]
  3. DIGOXIN [Concomitant]
  4. FOLIC ACID [Concomitant]
  5. FUROSEMIDE [Concomitant]
  6. LAXIDO [Concomitant]
  7. LEVOTHYROXINE [Concomitant]
  8. SIMVASTATIN [Concomitant]
  9. TEMAZEPAM [Concomitant]

REACTIONS (6)
  - Renal impairment [Unknown]
  - Rectal haemorrhage [Not Recovered/Not Resolved]
  - Anaemia [Unknown]
  - Dyspnoea [Unknown]
  - Fatigue [Unknown]
  - Constipation [Unknown]
